FAERS Safety Report 6044801-5 (Version None)
Quarter: 2009Q1

REPORT INFORMATION
  Report Type: 
  Country: None (occurrence: None)
  Receive Date: 20090120
  Receipt Date: 20090116
  Transmission Date: 20090719
  Serious: Yes (Hospitalization, Other)
  Sender: FDA-Public Use
  Company Number: US-ELI_LILLY_AND_COMPANY-US200901002860

PATIENT
  Age: 54 Year
  Sex: Female

DRUGS (2)
  1. ALIMTA [Suspect]
     Indication: PANCREATIC CARCINOMA
     Dosage: 880 MG, OTHER
     Route: 042
     Dates: start: 20081203, end: 20081217
  2. GEMZAR [Suspect]
     Indication: PANCREATIC CARCINOMA
     Dosage: 2870 MG, OTHER
     Route: 042

REACTIONS (7)
  - DEHYDRATION [None]
  - DIARRHOEA [None]
  - NAUSEA [None]
  - NEUTROPHIL COUNT DECREASED [None]
  - ORAL CANDIDIASIS [None]
  - VOMITING [None]
  - WHITE BLOOD CELL COUNT DECREASED [None]
